FAERS Safety Report 16573030 (Version 3)
Quarter: 2019Q3

REPORT INFORMATION
  Report Type: Spontaneous
  Country: US (occurrence: US)
  Receive Date: 20190715
  Receipt Date: 20190930
  Transmission Date: 20191004
  Serious: Yes (Other)
  Sender: FDA-Public Use
  Company Number: US-LEXICON PHARMACEUTICALS, INC-19-1606-00678

PATIENT
  Sex: Male

DRUGS (9)
  1. TELOTRISTAT ETHYL [Suspect]
     Active Substance: TELOTRISTAT ETHYL
     Indication: CARCINOID SYNDROME
     Route: 048
     Dates: start: 20190406
  2. AMIODARONE [Concomitant]
     Active Substance: AMIODARONE
  3. LOSARTAN. [Concomitant]
     Active Substance: LOSARTAN
  4. SOMATULINE [Concomitant]
     Active Substance: LANREOTIDE ACETATE
  5. ALDACTONE [Concomitant]
     Active Substance: SPIRONOLACTONE
  6. CARVEDILOL. [Concomitant]
     Active Substance: CARVEDILOL
  7. PRAVASTATIN. [Concomitant]
     Active Substance: PRAVASTATIN
  8. FUROSEMIDE. [Concomitant]
     Active Substance: FUROSEMIDE
  9. WARFARIN [Concomitant]
     Active Substance: WARFARIN

REACTIONS (6)
  - Cough [Unknown]
  - Hypotension [Unknown]
  - Flushing [Not Recovered/Not Resolved]
  - Abdominal pain [Recovered/Resolved]
  - Abdominal distension [Not Recovered/Not Resolved]
  - Atrial fibrillation [Unknown]
